FAERS Safety Report 12824474 (Version 2)
Quarter: 2016Q4

REPORT INFORMATION
  Report Type: Spontaneous
  Country: JP (occurrence: JP)
  Receive Date: 20161007
  Receipt Date: 20161023
  Transmission Date: 20170207
  Serious: Yes (Hospitalization)
  Sender: FDA-Public Use
  Company Number: JP-009507513-1610JPN000041

PATIENT
  Age: 78 Year
  Sex: Female

DRUGS (2)
  1. SOVALDI [Suspect]
     Active Substance: SOFOSBUVIR
     Dosage: DAILY DOSE UNKNOWN
     Route: 048
     Dates: start: 20160707
  2. REBETOL [Suspect]
     Active Substance: RIBAVIRIN
     Dosage: DAILY DOSE UNKNOWN
     Route: 048
     Dates: start: 20160707

REACTIONS (4)
  - Drug dose omission [Unknown]
  - Back pain [Unknown]
  - Headache [Unknown]
  - Vomiting [Unknown]

NARRATIVE: CASE EVENT DATE: 2016
